FAERS Safety Report 23957502 (Version 1)
Quarter: 2024Q2

REPORT INFORMATION
  Report Type: Spontaneous
  Country: GB (occurrence: GB)
  Receive Date: 20240610
  Receipt Date: 20240610
  Transmission Date: 20240716
  Serious: Yes (Disabling, Other)
  Sender: FDA-Public Use
  Company Number: None

PATIENT
  Age: 54 Year
  Sex: Female
  Weight: 68 kg

DRUGS (1)
  1. DULOXETINE HYDROCHLORIDE [Suspect]
     Active Substance: DULOXETINE HYDROCHLORIDE
     Indication: Fibromyalgia
     Dosage: 30 MG, DAILY
     Route: 065
     Dates: start: 20230306, end: 20230907

REACTIONS (4)
  - Obsessive-compulsive disorder [Recovering/Resolving]
  - Cough [Recovering/Resolving]
  - Diarrhoea [Not Recovered/Not Resolved]
  - Hyperhidrosis [Recovering/Resolving]

NARRATIVE: CASE EVENT DATE: 20230309
